FAERS Safety Report 4769039-0 (Version None)
Quarter: 2005Q3

REPORT INFORMATION
  Report Type: 
  Country: None (occurrence: None)
  Receive Date: 20050906
  Receipt Date: 20050511
  Transmission Date: 20060218
  Serious: No
  Sender: FDA-Public Use
  Company Number: 2005-BP-07247BP

PATIENT
  Sex: Male

DRUGS (13)
  1. SPIRIVA [Suspect]
     Indication: CHRONIC OBSTRUCTIVE PULMONARY DISEASE
     Dosage: 18 MCG(18 MCG),IH
     Dates: start: 20050428
  2. ADVAIR DISKUS 100/50 [Concomitant]
  3. ALBUTEROL [Concomitant]
  4. THEOPHYLLINE [Concomitant]
  5. VASOTEC [Concomitant]
  6. LIPITOR [Concomitant]
  7. NEXIUM [Concomitant]
  8. LEXAPRO [Concomitant]
  9. AMBIEN [Concomitant]
  10. XALATAN [Concomitant]
  11. NITROLINGUAL [Concomitant]
  12. IMDUR [Concomitant]
  13. CLARINEX [Concomitant]

REACTIONS (1)
  - SKIN LACERATION [None]
